FAERS Safety Report 8025323-9 (Version None)
Quarter: 2012Q1

REPORT INFORMATION
  Report Type: 
  Country: None (occurrence: None)
  Receive Date: 20120105
  Receipt Date: 20111230
  Transmission Date: 20120608
  Serious: Yes (Other)
  Sender: FDA-Public Use
  Company Number: GB-PFIZER INC-2012000130

PATIENT
  Age: 2 Year
  Sex: Male

DRUGS (2)
  1. REFACTO [Suspect]
     Indication: FACTOR VIII DEFICIENCY
     Dosage: 500 IU ONCE WEEKLY
  2. REFACTO [Suspect]
     Indication: PROPHYLAXIS

REACTIONS (1)
  - FACTOR VIII INHIBITION [None]
